FAERS Safety Report 9639180 (Version 2)
Quarter: 2013Q4

REPORT INFORMATION
  Report Type: Spontaneous
  Country: US (occurrence: None)
  Receive Date: 20131021
  Receipt Date: 20131021
  Transmission Date: 20140711
  Serious: Yes (Death)
  Sender: FDA-Public Use
  Company Number: 2013AP008491

PATIENT
  Age: 37 Year
  Sex: Female

DRUGS (3)
  1. TRAMADOL HYDROCHLORIDE TABLETS [Suspect]
     Route: 048
  2. CITALOPRAM [Suspect]
     Route: 048
  3. HYDROXYZINE [Suspect]
     Route: 048

REACTIONS (2)
  - Completed suicide [None]
  - Wrong drug administered [None]
